FAERS Safety Report 15676214 (Version 5)
Quarter: 2019Q4

REPORT INFORMATION
  Report Type: Report from Study
  Country: US (occurrence: US)
  Receive Date: 20181130
  Receipt Date: 20191029
  Transmission Date: 20200122
  Serious: Yes (Hospitalization, Other)
  Sender: FDA-Public Use
  Company Number: US-TESAROUBC-2018-TSO2064-US

PATIENT
  Sex: Female
  Weight: 57 kg

DRUGS (4)
  1. NIRAPARIB [Suspect]
     Active Substance: NIRAPARIB
     Dosage: 100 MG, HS WITHOUT FOOD
     Dates: start: 201806
  2. NIRAPARIB [Suspect]
     Active Substance: NIRAPARIB
     Indication: OVARIAN CANCER
     Dosage: 300 MG, UNK
     Dates: start: 201803, end: 201805
  3. NIRAPARIB [Suspect]
     Active Substance: NIRAPARIB
     Dosage: 100 MG, HS WITHOUT FOOD
     Dates: start: 201806
  4. LOVENOX [Concomitant]
     Active Substance: ENOXAPARIN SODIUM
     Indication: PRODUCT USED FOR UNKNOWN INDICATION

REACTIONS (12)
  - Pain in extremity [Recovering/Resolving]
  - Carbohydrate antigen 125 increased [Recovered/Resolved]
  - Recurrent cancer [Unknown]
  - Intestinal obstruction [Unknown]
  - Fall [Unknown]
  - Urinary incontinence [Not Recovered/Not Resolved]
  - Fatigue [Unknown]
  - Hip fracture [Unknown]
  - Product dose omission [Unknown]
  - Joint swelling [Unknown]
  - Arthralgia [Recovered/Resolved]
  - Influenza [Unknown]

NARRATIVE: CASE EVENT DATE: 2018
